FAERS Safety Report 5306934-8 (Version None)
Quarter: 2007Q2

REPORT INFORMATION
  Report Type: 
  Country: None (occurrence: None)
  Receive Date: 20070425
  Receipt Date: 20070416
  Transmission Date: 20071010
  Serious: Yes (Hospitalization)
  Sender: FDA-Public Use
  Company Number: FR-BAYER-200710206BFR

PATIENT
  Age: 56 Year
  Sex: Male
  Weight: 53 kg

DRUGS (4)
  1. SORAFENIB [Suspect]
     Indication: RENAL CELL CARCINOMA STAGE UNSPECIFIED
     Route: 048
     Dates: start: 20060206, end: 20060425
  2. ACTISKENAN [Concomitant]
     Indication: CANCER PAIN
     Dosage: UNIT DOSE: 10 MG
     Route: 048
     Dates: start: 20060101
  3. ACTISKENAN [Concomitant]
     Route: 048
     Dates: start: 20060101
  4. MOVICOL [Concomitant]
     Indication: CONSTIPATION PROPHYLAXIS
     Route: 048
     Dates: start: 20060101

REACTIONS (12)
  - ABDOMINAL PAIN [None]
  - ANOREXIA [None]
  - CATHETER RELATED INFECTION [None]
  - DEHYDRATION [None]
  - DISEASE PROGRESSION [None]
  - GENERAL PHYSICAL HEALTH DETERIORATION [None]
  - HYPOTENSION [None]
  - OVERDOSE [None]
  - PYREXIA [None]
  - SEPSIS [None]
  - URINARY RETENTION [None]
  - WEIGHT DECREASED [None]
